FAERS Safety Report 6790916-3 (Version None)
Quarter: 2010Q2

REPORT INFORMATION
  Report Type: 
  Country: None (occurrence: None)
  Receive Date: 20100624
  Receipt Date: 20100621
  Transmission Date: 20101027
  Serious: Yes (Other)
  Sender: FDA-Public Use
  Company Number: D0068037A

PATIENT
  Age: 67 Year
  Sex: Female
  Weight: 83 kg

DRUGS (7)
  1. AVANDIA [Suspect]
     Dosage: 8MG PER DAY
     Route: 048
     Dates: start: 20010101
  2. METFORMIN HCL [Concomitant]
     Dosage: 1000MG TWICE PER DAY
     Route: 048
  3. TORSEMIDE [Concomitant]
     Dosage: 2.5MG PER DAY
     Route: 048
  4. BISOPROLOL [Concomitant]
     Dosage: 5MG TWICE PER DAY
     Route: 048
  5. ENALAPRIL MALEATE [Concomitant]
     Route: 048
  6. SIMVASTATIN [Concomitant]
     Dosage: 20MG PER DAY
     Route: 048
  7. CHLORDIAZEPOXIDE HCL [Concomitant]
     Dosage: 230MG PER DAY
     Route: 048

REACTIONS (3)
  - BACK PAIN [None]
  - OSTEOPOROSIS [None]
  - SPINAL COMPRESSION FRACTURE [None]
